FAERS Safety Report 5301217-4 (Version None)
Quarter: 2007Q2

REPORT INFORMATION
  Report Type: 
  Country: None (occurrence: None)
  Receive Date: 20070411
  Receipt Date: 20070328
  Transmission Date: 20071010
  Serious: Yes (Hospitalization, Other)
  Sender: FDA-Public Use
  Company Number: POMP-10980

PATIENT
  Age: 3 Year
  Sex: Female

DRUGS (3)
  1. MYOZYME [Suspect]
     Indication: GLYCOGEN STORAGE DISEASE TYPE II
     Dates: start: 20060601
  2. MYOZYME [Suspect]
     Indication: GLYCOGEN STORAGE DISEASE TYPE II
     Dosage: 20 MG/KG Q2WKS IV
     Route: 042
     Dates: start: 20050217, end: 20060601
  3. MYOZYME [Suspect]
     Indication: GLYCOGEN STORAGE DISEASE TYPE II
     Dosage: 20 MG/KG Q2WKS IV
     Route: 042
     Dates: start: 20030926, end: 20050217

REACTIONS (3)
  - FEMORAL NECK FRACTURE [None]
  - GENERAL PHYSICAL HEALTH DETERIORATION [None]
  - URINE ANALYSIS ABNORMAL [None]
